FAERS Safety Report 8439209 (Version 2)
Quarter: 2014Q1

REPORT INFORMATION
  Report Type: Spontaneous
  Country: US (occurrence: None)
  Receive Date: 20120126
  Receipt Date: 20130507
  Transmission Date: 20141002
  Serious: No
  Sender: FDA-Public Use
  Company Number: PHEH2011US06457

PATIENT
  Age: 5 Year
  Sex: Female
  Weight: 52 kg

DRUGS (4)
  1. AFINITOR [Suspect]
     Indication: TUBEROUS SCLEROSIS
     Dosage: 2.5 MG DAILY, ORAL
     Route: 048
     Dates: start: 20110412
  2. AFINITOR [Suspect]
     Dosage: 2.5 MG DAILY, ORAL
     Route: 048
     Dates: start: 20110412
  3. LAMICTAL [Concomitant]
  4. VITAMINS NOS [Concomitant]

REACTIONS (8)
  - Body temperature decreased [None]
  - Gastroenteritis viral [None]
  - Decreased appetite [None]
  - Vomiting [None]
  - Diarrhoea [None]
  - Stomatitis [None]
  - Stomatitis [None]
  - Nasopharyngitis [None]
